FAERS Safety Report 14032491 (Version 6)
Quarter: 2020Q4

REPORT INFORMATION
  Report Type: Report from Study
  Country: US (occurrence: US)
  Receive Date: 20171003
  Receipt Date: 20201217
  Transmission Date: 20210113
  Serious: Yes (Other)
  Sender: FDA-Public Use
  Company Number: US-ACADIA PHARMACEUTICALS INC.-ACA-2017-005614

PATIENT
  Age: 69 Year
  Sex: Male
  Weight: 59 kg

DRUGS (19)
  1. NUPLAZID [Suspect]
     Active Substance: PIMAVANSERIN TARTRATE
     Indication: HALLUCINATION
     Dosage: 64 MG, QD
     Route: 065
     Dates: start: 20171002, end: 20171002
  2. ATIVAN [Suspect]
     Active Substance: LORAZEPAM
     Indication: ANXIETY
     Dosage: 0.5 MG, PRN
     Route: 065
  3. LATANOPROST. [Concomitant]
     Active Substance: LATANOPROST
     Indication: PRODUCT USED FOR UNKNOWN INDICATION
     Dosage: UNK
     Route: 047
  4. FLEXERIL [Concomitant]
     Active Substance: CYCLOBENZAPRINE HYDROCHLORIDE
     Dosage: 10 MILLIGRAM, TID
  5. NUPLAZID [Suspect]
     Active Substance: PIMAVANSERIN TARTRATE
     Indication: DELUSION
     Dosage: 34 MG, QD
     Route: 048
     Dates: start: 20171004
  6. APOMORPHINE [Suspect]
     Active Substance: APOMORPHINE
     Indication: PARKINSON^S DISEASE
     Dosage: UNK
     Dates: start: 20201007
  7. CARBIDOPA/LEVODOPA ER [Suspect]
     Active Substance: CARBIDOPA\LEVODOPA
     Indication: PRODUCT USED FOR UNKNOWN INDICATION
     Dosage: 50/200 MG, UNK
     Route: 065
  8. ASPIRIN. [Concomitant]
     Active Substance: ASPIRIN
     Indication: PRODUCT USED FOR UNKNOWN INDICATION
     Dosage: UNK
     Route: 065
  9. CARBIDOPA/LEVODOPA [Concomitant]
     Active Substance: CARBIDOPA\LEVODOPA
     Indication: PRODUCT USED FOR UNKNOWN INDICATION
     Dosage: 25/250 MG, QID
     Route: 065
  10. NUPLAZID [Suspect]
     Active Substance: PIMAVANSERIN TARTRATE
     Indication: PARKINSON^S DISEASE PSYCHOSIS
     Dosage: 34 MG, QD
     Route: 048
     Dates: start: 20170915, end: 20171001
  11. NUPLAZID [Suspect]
     Active Substance: PIMAVANSERIN TARTRATE
     Indication: PARKINSON^S DISEASE
     Dosage: 68 MILLIGRAM, QD
     Route: 048
  12. ENTACAPONE. [Concomitant]
     Active Substance: ENTACAPONE
     Indication: PRODUCT USED FOR UNKNOWN INDICATION
     Dosage: 200 MG, QID
     Route: 065
  13. CLONAZEPAM. [Concomitant]
     Active Substance: CLONAZEPAM
     Dosage: 0.5 MG
  14. NUPLAZID [Suspect]
     Active Substance: PIMAVANSERIN TARTRATE
     Indication: PARKINSON^S DISEASE
     Dosage: 10 MILLIGRAM, QD (10 MG+ 34 MG CAPSULE= 44 MG)
     Route: 065
  15. INBRIJA [Suspect]
     Active Substance: LEVODOPA
     Indication: PARKINSON^S DISEASE
     Dosage: 84 MILLIGRAM, PRN
     Dates: start: 20190510
  16. MIRTAZAPINE. [Concomitant]
     Active Substance: MIRTAZAPINE
     Dosage: 30 MCG
  17. SINEMET [Concomitant]
     Active Substance: CARBIDOPA\LEVODOPA
     Dosage: 25/250 QHS
  18. SINEMET [Concomitant]
     Active Substance: CARBIDOPA\LEVODOPA
     Dosage: CR 50/200 QHS
  19. NUPLAZID [Suspect]
     Active Substance: PIMAVANSERIN TARTRATE
     Dosage: 34 MG, QD
     Route: 065
     Dates: start: 20180505

REACTIONS (18)
  - Fatigue [Unknown]
  - Hallucination [Recovering/Resolving]
  - Dyspnoea [Unknown]
  - Disorientation [Recovered/Resolved]
  - Suicidal ideation [Recovered/Resolved]
  - Abnormal dreams [Recovered/Resolved]
  - Aggression [Unknown]
  - Accidental overdose [Unknown]
  - Palpitations [Unknown]
  - Prescribed overdose [Unknown]
  - Memory impairment [Recovered/Resolved]
  - Anxiety [Unknown]
  - Aggression [Recovered/Resolved]
  - Balance disorder [Recovered/Resolved]
  - Abnormal behaviour [Recovered/Resolved]
  - Chest pain [Unknown]
  - Drug ineffective [Unknown]
  - Irritability [Recovered/Resolved]

NARRATIVE: CASE EVENT DATE: 2017
